FAERS Safety Report 18206429 (Version 2)
Quarter: 2020Q3

REPORT INFORMATION
  Report Type: Spontaneous
  Country: US (occurrence: US)
  Receive Date: 20200828
  Receipt Date: 20200903
  Transmission Date: 20201103
  Serious: Yes (Death, Other)
  Sender: FDA-Public Use
  Company Number: US-PFIZER INC-2020332684

PATIENT
  Age: 28 Year
  Sex: Male

DRUGS (7)
  1. DEXAMETHASONE. [Concomitant]
     Active Substance: DEXAMETHASONE
     Dosage: 4 MG, EVERY SIX HOURS
  2. MANNITOL. [Suspect]
     Active Substance: MANNITOL
     Dosage: 950 G (OVER 48 H)
     Route: 042
  3. MANNITOL. [Suspect]
     Active Substance: MANNITOL
     Dosage: 50 MG
     Route: 042
  4. MANNITOL. [Suspect]
     Active Substance: MANNITOL
     Dosage: 900 G
     Route: 042
  5. PHENOBARBITAL SODIUM. [Concomitant]
     Active Substance: PHENOBARBITAL SODIUM
     Dosage: UNK, EVERY EIGHT HOURS
  6. NEMBUTAL SODIUM [Concomitant]
     Active Substance: PENTOBARBITAL SODIUM
     Dosage: UNK (SINCE THE THIRD DAY)
  7. CIMETIDINE [Concomitant]
     Active Substance: CIMETIDINE
     Dosage: UNK, EVERY EIGHT HOURS SINCE THE SECOND DAY

REACTIONS (2)
  - Sepsis [Fatal]
  - Acute kidney injury [Recovered/Resolved]
